FAERS Safety Report 8446007-9 (Version None)
Quarter: 2012Q2

REPORT INFORMATION
  Report Type: 
  Country: None (occurrence: None)
  Receive Date: 20120323
  Receipt Date: 20110628
  Transmission Date: 20120825
  Serious: Yes (Other)
  Sender: FDA-Public Use
  Company Number: 163-21880-11063830

PATIENT
  Age: 81 Year
  Sex: Female

DRUGS (11)
  1. COUMADIN [Concomitant]
  2. LEVOTHYROXINE SODIUM [Concomitant]
  3. METFFORMIN HYDROCHLORIDE [Concomitant]
  4. SIMVASTATIN [Concomitant]
  5. ALMODIPINE (AMLODIPINE) [Concomitant]
  6. POTASSIUM CHLORIDE [Concomitant]
  7. LISINOPRIL [Concomitant]
  8. REVLIMID [Suspect]
     Indication: MULTIPLE MYELOMA
     Dosage: 35 MG, 1 IN 1 D, PO; 10 MG, DAILY FOR 21 DAYS WITH A 7 DAY BRAEK, PO; 5 MG, DAILY FOR 28 DAYS, PO
     Route: 048
     Dates: start: 20110131
  9. REVLIMID [Suspect]
     Indication: MULTIPLE MYELOMA
     Dosage: 35 MG, 1 IN 1 D, PO; 10 MG, DAILY FOR 21 DAYS WITH A 7 DAY BRAEK, PO; 5 MG, DAILY FOR 28 DAYS, PO
     Route: 048
     Dates: start: 20110601
  10. GLIPIZIDE [Concomitant]
  11. DEXAMETHASONE [Concomitant]

REACTIONS (1)
  - DEEP VEIN THROMBOSIS [None]
